FAERS Safety Report 19101551 (Version 1)
Quarter: 2021Q2

REPORT INFORMATION
  Report Type: Spontaneous
  Country: JP (occurrence: JP)
  Receive Date: 20210407
  Receipt Date: 20210407
  Transmission Date: 20210717
  Serious: Yes (Other)
  Sender: FDA-Public Use
  Company Number: JP-TOLMAR, INC.-21JP026363

PATIENT
  Age: 42 Year
  Sex: Female

DRUGS (4)
  1. CONJUGATED ESTROGENS [Suspect]
     Active Substance: ESTROGENS, CONJUGATED
     Indication: ENDOMETRIOSIS
     Dosage: 0.625 MG, QOD
     Route: 065
  2. ELIGARD [Suspect]
     Active Substance: LEUPROLIDE ACETATE
     Indication: ENDOMETRIOSIS
     Dosage: 1.88 MG/MONTH
     Route: 065
  3. ELIGARD [Suspect]
     Active Substance: LEUPROLIDE ACETATE
     Dosage: 1.88 MG, ONCE EVERY 6 WEEKS
     Route: 065
  4. ELIGARD [Suspect]
     Active Substance: LEUPROLIDE ACETATE
     Dosage: 1.88 MG, ONCE EVERY 4 WEEKS FOR THE FIRST 6 MONTHS
     Route: 065

REACTIONS (4)
  - Pyelonephritis acute [Unknown]
  - Bone density decreased [Not Recovered/Not Resolved]
  - Hydronephrosis [Unknown]
  - Off label use [Unknown]
